FAERS Safety Report 6622795-9 (Version None)
Quarter: 2010Q1

REPORT INFORMATION
  Report Type: 
  Country: None (occurrence: None)
  Receive Date: 20100305
  Receipt Date: 20100226
  Transmission Date: 20100710
  Serious: Yes (Other)
  Sender: FDA-Public Use
  Company Number: 2010SP012400

PATIENT
  Age: 65 Year
  Sex: Female

DRUGS (4)
  1. DESLORATADINE [Suspect]
     Indication: ANAPHYLACTIC SHOCK
     Dosage: 10 MG; QD;
     Dates: start: 20100223
  2. MEDROL [Concomitant]
  3. DIOVAN [Concomitant]
  4. T4 [Concomitant]

REACTIONS (5)
  - BLOOD PRESSURE SYSTOLIC INCREASED [None]
  - HEADACHE [None]
  - OFF LABEL USE [None]
  - OVERDOSE [None]
  - SOMNOLENCE [None]
